FAERS Safety Report 16868525 (Version 1)
Quarter: 2019Q3

REPORT INFORMATION
  Report Type: Spontaneous
  Country: DE (occurrence: DE)
  Receive Date: 20190930
  Receipt Date: 20190930
  Transmission Date: 20191005
  Serious: Yes (Hospitalization)
  Sender: FDA-Public Use
  Company Number: PHHY2019DE225036

PATIENT
  Age: 62 Year
  Sex: Male
  Weight: 71 kg

DRUGS (8)
  1. DOCETAXEL. [Suspect]
     Active Substance: DOCETAXEL
     Indication: LUNG ADENOCARCINOMA
     Dosage: 25 MG/M2, QD (DAILY DOSE : 25 MG/M2 BSA)
     Route: 042
  2. VARGATEF [Suspect]
     Active Substance: NINTEDANIB
     Indication: LUNG ADENOCARCINOMA
     Dosage: 400 MG, QD
     Route: 048
     Dates: start: 20150530, end: 20150616
  3. MACROGOL [Concomitant]
     Active Substance: POLYETHYLENE GLYCOLS
     Indication: PROPHYLAXIS
     Dosage: UNK UNK, QD (DAILY DOSE: 2 OTHER)
     Route: 048
  4. MCP [Concomitant]
     Active Substance: METOCLOPRAMIDE HYDROCHLORIDE
     Indication: PROPHYLAXIS
     Dosage: 30 MG, QD (ORAL/PER OS (P.O))
     Route: 048
     Dates: start: 20150317
  5. MST [Concomitant]
     Indication: PRODUCT USED FOR UNKNOWN INDICATION
     Dosage: 60 MG, QD (ORAL/PER OS (P.O))
     Route: 048
     Dates: start: 20150327
  6. PANTOPRAZOL [Concomitant]
     Active Substance: PANTOPRAZOLE SODIUM
     Indication: PROPHYLAXIS
     Dosage: 40 MG, QD (ORAL/PER OS (P.O))
     Route: 048
     Dates: start: 20150327
  7. NOVAMINSULFON [Concomitant]
     Active Substance: METAMIZOLE
     Indication: PRODUCT USED FOR UNKNOWN INDICATION
     Dosage: 80 DF, QD (ORAL/PER OS (P.O))
     Route: 048
     Dates: start: 20150317
  8. XARELTO [Concomitant]
     Active Substance: RIVAROXABAN
     Indication: PRODUCT USED FOR UNKNOWN INDICATION
     Dosage: 20 MG, QD (ORAL/PER OS (P.O))
     Route: 048
     Dates: start: 20150604

REACTIONS (5)
  - Pain [Unknown]
  - Vomiting [Recovered/Resolved]
  - Vomiting [Recovered/Resolved]
  - Hypokalaemia [Recovered/Resolved]
  - Decreased appetite [Not Recovered/Not Resolved]

NARRATIVE: CASE EVENT DATE: 20150603
